FAERS Safety Report 14343922 (Version 1)
Quarter: 2018Q1

REPORT INFORMATION
  Report Type: Spontaneous
  Country: US (occurrence: US)
  Receive Date: 20180102
  Receipt Date: 20180102
  Transmission Date: 20180509
  Serious: No
  Sender: FDA-Public Use
  Company Number: US-BAYER-2017-247762

PATIENT
  Sex: Female

DRUGS (4)
  1. TYLENOL PM [Concomitant]
     Active Substance: ACETAMINOPHEN\DIPHENHYDRAMINE
  2. MELATONIN [Concomitant]
     Active Substance: MELATONIN
  3. MIRALAX [Suspect]
     Active Substance: POLYETHYLENE GLYCOL 3350
     Indication: GASTROINTESTINAL DISORDER
     Route: 048
     Dates: start: 201702
  4. BONIVA [Concomitant]
     Active Substance: IBANDRONATE SODIUM

REACTIONS (5)
  - Product prescribing issue [Unknown]
  - Blood test abnormal [Unknown]
  - Product use issue [Unknown]
  - Contraindicated product administered [None]
  - Product use issue [Unknown]

NARRATIVE: CASE EVENT DATE: 201702
